FAERS Safety Report 6710177-0 (Version None)
Quarter: 2010Q2

REPORT INFORMATION
  Report Type: 
  Country: None (occurrence: None)
  Receive Date: 20100504
  Receipt Date: 20100423
  Transmission Date: 20101027
  Serious: Yes (Hospitalization, Congenital Anomaly, Other)
  Sender: FDA-Public Use
  Company Number: US-WATSON-2010-05634

PATIENT
  Sex: Male

DRUGS (1)
  1. METOCLOPRAMIDE HYDROCHLORIDE [Suspect]
     Indication: VOMITING IN PREGNANCY
     Dosage: 10 MG, QAM (TOOK QAM FOR 20 DAYS BETWEEN 7/15/08-08/28/08 THEN 5 DAYS FOLLOWING 8/28/08)
     Route: 064
     Dates: start: 20080715, end: 20080902

REACTIONS (33)
  - ABNORMAL PALMAR/PLANTAR CREASES [None]
  - ASPIRATION [None]
  - ASTHENIA [None]
  - CONGENITAL EYELID MALFORMATION [None]
  - CONGENITAL HIP DEFORMITY [None]
  - CONGENITAL MULTIPLEX ARTHROGRYPOSIS [None]
  - CONVULSION [None]
  - CYANOSIS NEONATAL [None]
  - EYE DISORDER [None]
  - FOOT DEFORMITY [None]
  - HYDROCELE [None]
  - HYPERTONIA [None]
  - JAUNDICE NEONATAL [None]
  - JOINT RANGE OF MOTION DECREASED [None]
  - LARYNGOMALACIA [None]
  - LIMB MALFORMATION [None]
  - MACROCEPHALY [None]
  - MICROGNATHIA [None]
  - MICROPHTHALMOS [None]
  - MIOSIS [None]
  - MOBILITY DECREASED [None]
  - MUSCLE CONTRACTURE [None]
  - MUSCLE TWITCHING [None]
  - NASAL CONGESTION [None]
  - NASOPHARYNGITIS [None]
  - PENIS DISORDER [None]
  - PERIPHERAL OEDEMA NEONATAL [None]
  - PREMATURE BABY [None]
  - RESPIRATORY DISORDER NEONATAL [None]
  - STRIDOR [None]
  - TALIPES [None]
  - TORTICOLLIS [None]
  - UPPER RESPIRATORY TRACT CONGESTION [None]
